FAERS Safety Report 9964611 (Version 1)
Quarter: 2014Q1

REPORT INFORMATION
  Report Type: Report from Study
  Country: BR (occurrence: BR)
  Receive Date: 20140305
  Receipt Date: 20140305
  Transmission Date: 20141002
  Serious: Yes (Other)
  Sender: FDA-Public Use
  Company Number: PHHY2014BR026288

PATIENT
  Sex: Male
  Weight: 114 kg

DRUGS (6)
  1. DIOVAN [Suspect]
     Indication: BLOOD PRESSURE INADEQUATELY CONTROLLED
     Dosage: 1 DF (320MG) DAILY
     Route: 048
  2. DIOVAN [Suspect]
     Dosage: 80 MG, (2 TABLETS IN THE MORNING AND 2 TABLET IN THE NIGHT)
     Route: 048
     Dates: start: 20140302
  3. ONGLYZA [Concomitant]
     Indication: DIABETES MELLITUS
     Dosage: 5 MG, UNK
  4. ASPIRINA [Concomitant]
     Indication: BLOOD VISCOSITY INCREASED
     Dosage: UNK UKN, UNK
  5. ATENOLOL [Concomitant]
     Dosage: 50 MG, UNK
  6. INSULIN [Concomitant]
     Indication: DIABETES MELLITUS
     Dosage: 50 UKN, UNK

REACTIONS (2)
  - Angina pectoris [Recovered/Resolved]
  - Respiratory failure [Recovered/Resolved]
